FAERS Safety Report 19941632 (Version 1)
Quarter: 2021Q4

REPORT INFORMATION
  Report Type: Spontaneous
  Country: US (occurrence: US)
  Receive Date: 20211008
  Receipt Date: 20211008
  Transmission Date: 20220303
  Serious: No
  Sender: FDA-Public Use
  Company Number: None

PATIENT
  Age: 43 Year
  Sex: Female
  Weight: 108 kg

DRUGS (5)
  1. REGEN-COV [Suspect]
     Active Substance: CASIRIVIMAB\IMDEVIMAB
     Indication: COVID-19
     Route: 042
     Dates: start: 20211006, end: 20211006
  2. LEVOTHYROXINE [Concomitant]
     Active Substance: LEVOTHYROXINE
  3. VITAMIN D [Concomitant]
     Active Substance: VITAMIN D NOS
  4. VITAMIN C [Concomitant]
     Active Substance: ASCORBIC ACID
  5. ASPIRIN [Concomitant]
     Active Substance: ASPIRIN

REACTIONS (15)
  - Chest pain [None]
  - Blood pressure increased [None]
  - Rhinorrhoea [None]
  - Paranasal sinus discomfort [None]
  - Headache [None]
  - Rhinalgia [None]
  - Pyrexia [None]
  - Chills [None]
  - Tremor [None]
  - Asthenia [None]
  - Hyperhidrosis [None]
  - Palpitations [None]
  - Heart rate increased [None]
  - Infusion related reaction [None]
  - Anxiety [None]

NARRATIVE: CASE EVENT DATE: 20211006
